FAERS Safety Report 9986194 (Version 2)
Quarter: 2014Q1

REPORT INFORMATION
  Report Type: Spontaneous
  Country: US (occurrence: US)
  Receive Date: 20140307
  Receipt Date: 20140307
  Transmission Date: 20141002
  Serious: Yes (Death)
  Sender: FDA-Public Use
  Company Number: US-GE HEALTHCARE MEDICAL DIAGNOSTICS-OSCN-PR-1012S-0291

PATIENT
  Age: 60 Year
  Sex: Male

DRUGS (1)
  1. OMNISCAN [Suspect]
     Indication: BACK PAIN
     Route: 065
     Dates: start: 20050602, end: 20050602

REACTIONS (1)
  - Nephrogenic systemic fibrosis [Fatal]
